FAERS Safety Report 17820179 (Version 1)
Quarter: 2020Q2

REPORT INFORMATION
  Report Type: Spontaneous
  Country: US (occurrence: US)
  Receive Date: 20200525
  Receipt Date: 20200525
  Transmission Date: 20200714
  Serious: Yes (Other)
  Sender: FDA-Public Use
  Company Number: US-009507513-2005USA006550

PATIENT
  Age: 85 Year
  Sex: Male

DRUGS (1)
  1. KEYTRUDA [Suspect]
     Active Substance: PEMBROLIZUMAB
     Indication: METASTATIC MALIGNANT MELANOMA
     Dosage: 2 MILLIGRAM/KILOGRAM; A TOTAL OF THREE DOSES
     Dates: start: 2015, end: 2015

REACTIONS (4)
  - Polymyalgia rheumatica [Recovered/Resolved]
  - Type 1 diabetes mellitus [Recovered/Resolved]
  - Autoimmune hypothyroidism [Recovered/Resolved]
  - Immune-mediated pneumonitis [Recovered/Resolved]

NARRATIVE: CASE EVENT DATE: 2015
